FAERS Safety Report 7212765-4 (Version None)
Quarter: 2010Q4

REPORT INFORMATION
  Report Type: 
  Country: None (occurrence: None)
  Receive Date: 20101227
  Receipt Date: 20101213
  Transmission Date: 20110411
  Serious: Yes (Death)
  Sender: FDA-Public Use
  Company Number: AE 2009-002

PATIENT
  Age: 55 Year
  Sex: Male

DRUGS (8)
  1. FAZACLO ODT [Suspect]
     Indication: SCHIZOAFFECTIVE DISORDER BIPOLAR TYPE
     Dosage: 300 MG QHS PO
     Route: 048
     Dates: start: 20060911, end: 20081124
  2. DEPAKOTE ER [Concomitant]
  3. SEROQUEL [Concomitant]
  4. RESTORIL [Concomitant]
  5. DIOVAN [Concomitant]
  6. TRAVATAN [Concomitant]
  7. NIFEDIPINE [Concomitant]
  8. COSOPT [Concomitant]

REACTIONS (1)
  - HYPERTENSIVE HEART DISEASE [None]
